FAERS Safety Report 13854224 (Version 1)
Quarter: 2017Q3

REPORT INFORMATION
  Report Type: Spontaneous
  Country: BR (occurrence: BR)
  Receive Date: 20170810
  Receipt Date: 20170810
  Transmission Date: 20171127
  Serious: Yes (Other)
  Sender: FDA-Public Use
  Company Number: BR-GLAXOSMITHKLINE-BR2017GSK124101

PATIENT
  Sex: Female
  Weight: 88 kg

DRUGS (2)
  1. RELVAR ELLIPTA [Suspect]
     Active Substance: FLUTICASONE FUROATE\VILANTEROL TRIFENATATE
     Indication: PNEUMONIA
     Dosage: UNK
  2. VANNAIR [Concomitant]
     Active Substance: BUDESONIDE\FORMOTEROL FUMARATE DIHYDRATE
     Indication: ASTHMA
     Dosage: UNK

REACTIONS (5)
  - Oropharyngeal candidiasis [Not Recovered/Not Resolved]
  - Product use in unapproved indication [Recovered/Resolved]
  - Oesophageal candidiasis [Not Recovered/Not Resolved]
  - Abdominal pain upper [Unknown]
  - Drug prescribing error [Unknown]
